FAERS Safety Report 8241736 (Version 2)
Quarter: 2013Q1

REPORT INFORMATION
  Report Type: Report from Study
  Country: US (occurrence: US)
  Receive Date: 20111111
  Receipt Date: 20130221
  Transmission Date: 20140127
  Serious: Yes (Hospitalization)
  Sender: FDA-Public Use
  Company Number: US-ROCHE-1009467

PATIENT
  Age: 27 Year
  Sex: Male
  Weight: 60.68 kg

DRUGS (2)
  1. VEMURAFENIB [Suspect]
     Indication: METASTATIC MALIGNANT MELANOMA
     Dosage: LAST DOSE PRIOR TO SAE:27/AUG/2011
     Route: 048
     Dates: start: 20110809
  2. GDC-0973 [Suspect]
     Indication: METASTATIC MALIGNANT MELANOMA
     Dosage: LAST DOSE PRIOR TO SAE:27/AUG/2011
     Route: 048
     Dates: start: 20110809

REACTIONS (1)
  - Spinal cord compression [Unknown]
